FAERS Safety Report 22921350 (Version 2)
Quarter: 2024Q3

REPORT INFORMATION
  Report Type: Spontaneous
  Country: US (occurrence: None)
  Receive Date: 20230908
  Receipt Date: 20240906
  Transmission Date: 20241016
  Serious: No
  Sender: DOMPE FARMACEUTICI
  Company Number: US-FARMAPROD-202305-1597

PATIENT
  Age: 71 Year
  Sex: Female

DRUGS (8)
  1. OXERVATE [Suspect]
     Active Substance: CENEGERMIN-BKBJ
     Indication: Neurotrophic keratopathy
     Route: 047
     Dates: start: 20230504
  2. OXERVATE [Suspect]
     Active Substance: CENEGERMIN-BKBJ
  3. DIETARY SUPPLEMENT [Concomitant]
     Active Substance: DIETARY SUPPLEMENT
  4. VITAL TEARS [Concomitant]
  5. INDOMETHACIN [Concomitant]
     Active Substance: INDOMETHACIN
  6. VITAMIN D3 [Concomitant]
     Active Substance: CHOLECALCIFEROL
  7. PREDNISOLONE-BROMFENAC [Concomitant]
  8. HUMAN HEMATOPOIETIC PROGENITOR CELLS [Concomitant]
     Active Substance: HUMAN HEMATOPOIETIC PROGENITOR CELLS
     Route: 047

REACTIONS (5)
  - Product storage error [Unknown]
  - Product administration error [Unknown]
  - Eye pain [Recovering/Resolving]
  - Therapy interrupted [Unknown]
  - Eye discharge [Unknown]

NARRATIVE: CASE EVENT DATE: 20230701
